FAERS Safety Report 19041121 (Version 1)
Quarter: 2021Q1

REPORT INFORMATION
  Report Type: Report from Study
  Country: None (occurrence: CL)
  Receive Date: 20210323
  Receipt Date: 20210323
  Transmission Date: 20210420
  Serious: Yes (Hospitalization, Other)
  Sender: FDA-Public Use
  Company Number: CL-ABBVIE-20K-034-3556679-00

PATIENT
  Age: 16 Year
  Sex: Female

DRUGS (9)
  1. HUMIRA [Suspect]
     Active Substance: ADALIMUMAB
     Route: 058
  2. PREGABALIN. [Suspect]
     Active Substance: PREGABALIN
     Indication: SPINAL PAIN
     Route: 065
  3. METHOTREXATE. [Concomitant]
     Active Substance: METHOTREXATE
     Indication: PRODUCT USED FOR UNKNOWN INDICATION
  4. TRAMADOL. [Suspect]
     Active Substance: TRAMADOL
     Indication: SPINAL PAIN
     Route: 065
  5. PREGABALIN. [Suspect]
     Active Substance: PREGABALIN
     Route: 065
  6. TRAMADOL. [Suspect]
     Active Substance: TRAMADOL
     Route: 065
  7. HUMIRA [Suspect]
     Active Substance: ADALIMUMAB
     Indication: JUVENILE IDIOPATHIC ARTHRITIS
     Route: 058
     Dates: start: 20190117
  8. FOLIC ACID. [Concomitant]
     Active Substance: FOLIC ACID
     Indication: PRODUCT USED FOR UNKNOWN INDICATION
  9. ESOMEPRAZOLE. [Concomitant]
     Active Substance: ESOMEPRAZOLE MAGNESIUM
     Indication: PRODUCT USED FOR UNKNOWN INDICATION

REACTIONS (9)
  - Drug hypersensitivity [Recovering/Resolving]
  - Nail discolouration [Not Recovered/Not Resolved]
  - Ovarian cyst [Recovered/Resolved]
  - Abdominal pain upper [Recovering/Resolving]
  - Nausea [Unknown]
  - Spinal pain [Unknown]
  - Inflammation [Recovered/Resolved]
  - General physical health deterioration [Unknown]
  - Sjogren^s syndrome [Not Recovered/Not Resolved]

NARRATIVE: CASE EVENT DATE: 2020
